FAERS Safety Report 4654386-3 (Version None)
Quarter: 2005Q2

REPORT INFORMATION
  Report Type: 
  Country: None (occurrence: None)
  Receive Date: 20050504
  Receipt Date: 20050421
  Transmission Date: 20051028
  Serious: Yes (Hospitalization, Other)
  Sender: FDA-Public Use
  Company Number: 2005063631

PATIENT
  Sex: Female
  Weight: 52.6173 kg

DRUGS (5)
  1. BEXTRA [Suspect]
     Indication: ARTHRITIS
     Dosage: ORAL
     Route: 048
  2. ACETYL SALICYLIC ACID USP BAT [Concomitant]
  3. LISINOPRIL [Concomitant]
  4. LEVOTHYROXINE SODIUM [Concomitant]
  5. SIMVASTATIN [Concomitant]

REACTIONS (8)
  - ABASIA [None]
  - BRONCHITIS [None]
  - CEREBROVASCULAR ACCIDENT [None]
  - CONTUSION [None]
  - PNEUMONIA [None]
  - POLYMYALGIA [None]
  - RASH MACULAR [None]
  - TREMOR [None]
